FAERS Safety Report 25667544 (Version 2)
Quarter: 2025Q3

REPORT INFORMATION
  Report Type: Spontaneous
  Country: US (occurrence: US)
  Receive Date: 20250811
  Receipt Date: 20250818
  Transmission Date: 20251021
  Serious: No
  Sender: ABBVIE
  Company Number: US-ABBVIE-6408096

PATIENT
  Age: 83 Year
  Sex: Female
  Weight: 58.059 kg

DRUGS (3)
  1. SKYRIZI [Suspect]
     Active Substance: RISANKIZUMAB-RZAA
     Indication: Crohn^s disease
     Route: 058
     Dates: start: 202407
  2. PREDNISONE [Concomitant]
     Active Substance: PREDNISONE
     Indication: Abdominal pain upper
  3. LEVOTHYROXINE [Concomitant]
     Active Substance: LEVOTHYROXINE
     Indication: Thyroid cyst

REACTIONS (6)
  - Diarrhoea [Not Recovered/Not Resolved]
  - Inflammation [Recovering/Resolving]
  - Drug ineffective [Unknown]
  - Unevaluable event [Unknown]
  - Blood sodium decreased [Not Recovered/Not Resolved]
  - Abdominal pain upper [Recovering/Resolving]

NARRATIVE: CASE EVENT DATE: 20250801
